FAERS Safety Report 8471550-6 (Version None)
Quarter: 2012Q2

REPORT INFORMATION
  Report Type: 
  Country: None (occurrence: None)
  Receive Date: 20120323
  Receipt Date: 20111222
  Transmission Date: 20120825
  Serious: Yes (Hospitalization, Other)
  Sender: FDA-Public Use
  Company Number: 163-21880-11100035

PATIENT
  Age: 74 Year
  Sex: Male

DRUGS (15)
  1. REVLIMID [Suspect]
     Indication: B-CELL LYMPHOMA
     Dosage: 25 MG, DAILY FOR 21 DAYS, PO; 25 MG, DAILY, PO; 25 MG, ONCE A WEEK, PO, 10 MG, DAILY, PO
     Route: 048
     Dates: start: 20110917, end: 20110919
  2. REVLIMID [Suspect]
     Indication: B-CELL LYMPHOMA
     Dosage: 25 MG, DAILY FOR 21 DAYS, PO; 25 MG, DAILY, PO; 25 MG, ONCE A WEEK, PO, 10 MG, DAILY, PO
     Route: 048
     Dates: start: 20110709
  3. REVLIMID [Suspect]
     Indication: B-CELL LYMPHOMA
     Dosage: 25 MG, DAILY FOR 21 DAYS, PO; 25 MG, DAILY, PO; 25 MG, ONCE A WEEK, PO, 10 MG, DAILY, PO
     Route: 048
     Dates: start: 20111007
  4. REVLIMID [Suspect]
     Indication: B-CELL LYMPHOMA
     Dosage: 25 MG, DAILY FOR 21 DAYS, PO; 25 MG, DAILY, PO; 25 MG, ONCE A WEEK, PO, 10 MG, DAILY, PO
     Route: 048
     Dates: start: 20111103
  5. CARDIZEM [Concomitant]
  6. POTASSIUM [Concomitant]
  7. DILTIAZEM HYDROCHOLORIDE [Concomitant]
  8. EPIVIR [Concomitant]
  9. ZEGERID (OMEPRAZOLE) [Concomitant]
  10. PREDNISONE [Concomitant]
  11. PACKED RED BLOOD CELL TRANSFUSION (BLOOD CELLS, PACKED HUMAN) [Concomitant]
  12. POTASSIUM CHLORIDE [Concomitant]
  13. LORTAB [Concomitant]
  14. PLATELET TRANSFUSION (PLATELETS) [Concomitant]
  15. SOLU-MEDROL [Concomitant]

REACTIONS (3)
  - FALL [None]
  - PLATELET COUNT DECREASED [None]
  - SPLENIC HAEMATOMA [None]
